FAERS Safety Report 8361022-1 (Version None)
Quarter: 2012Q2

REPORT INFORMATION
  Report Type: 
  Country: None (occurrence: None)
  Receive Date: 20120515
  Receipt Date: 20120430
  Transmission Date: 20120825
  Serious: No
  Sender: FDA-Public Use
  Company Number: US-ASTRAZENECA-2011SE36605

PATIENT
  Age: 55 Year

DRUGS (1)
  1. SEROQUEL XR [Suspect]
     Indication: BIPOLAR DISORDER
     Route: 048

REACTIONS (3)
  - FEELING ABNORMAL [None]
  - INSOMNIA [None]
  - INTENTIONAL DRUG MISUSE [None]
